FAERS Safety Report 25040286 (Version 1)
Quarter: 2025Q1

REPORT INFORMATION
  Report Type: Report from Study
  Country: KR (occurrence: KR)
  Receive Date: 20250305
  Receipt Date: 20250305
  Transmission Date: 20250408
  Serious: Yes (Other)
  Sender: HISUN PHARMACEUTICALS USA INC
  Company Number: KR-Hisun Pharmaceuticals USA Inc.-000183

PATIENT
  Age: 61 Year
  Sex: Male
  Weight: 0 kg

DRUGS (1)
  1. CLADRIBINE [Suspect]
     Active Substance: CLADRIBINE
     Indication: Hairy cell leukaemia
     Dosage: 0.14 MG/KG/DAY

REACTIONS (1)
  - Liver function test increased [Unknown]
